FAERS Safety Report 9435201 (Version 2)
Quarter: 2013Q3

REPORT INFORMATION
  Report Type: Spontaneous
  Country: TR (occurrence: TR)
  Receive Date: 20130801
  Receipt Date: 20130813
  Transmission Date: 20140515
  Serious: Yes (Other)
  Sender: FDA-Public Use
  Company Number: TR-ASTELLAS-2013EU006617

PATIENT
  Sex: Female
  Weight: 61 kg

DRUGS (1)
  1. PROGRAF [Suspect]
     Indication: IMMUNOSUPPRESSION
     Dosage: 2 UNK, BID
     Route: 065

REACTIONS (3)
  - Exposure during pregnancy [Unknown]
  - Abortion missed [Unknown]
  - Premature labour [Recovering/Resolving]
